FAERS Safety Report 7049075-4 (Version None)
Quarter: 2010Q4

REPORT INFORMATION
  Report Type: 
  Country: None (occurrence: None)
  Receive Date: 20101018
  Receipt Date: 20101007
  Transmission Date: 20110411
  Serious: Yes (Death)
  Sender: FDA-Public Use
  Company Number: NO-JNJFOC-20101002429

PATIENT
  Sex: Male

DRUGS (4)
  1. REMICADE [Suspect]
     Indication: CROHN'S DISEASE
     Route: 042
  2. IMURAN [Suspect]
     Indication: CROHN'S DISEASE
     Route: 048
  3. PREDNISOLON [Concomitant]
     Route: 048
  4. HUMIRA [Concomitant]
     Route: 058

REACTIONS (1)
  - COLON CANCER METASTATIC [None]
